FAERS Safety Report 8569069-7 (Version None)
Quarter: 2012Q3

REPORT INFORMATION
  Report Type: 
  Country: None (occurrence: None)
  Receive Date: 20120803
  Receipt Date: 20120726
  Transmission Date: 20120928
  Serious: Yes (Other)
  Sender: FDA-Public Use
  Company Number: CA-FRI-1000037530

PATIENT
  Sex: Male
  Weight: 90 kg

DRUGS (8)
  1. CELEXA [Concomitant]
  2. CARDIZEM [Concomitant]
  3. ROFLUMILAST [Suspect]
     Dosage: 500 MCG
     Dates: start: 20120116, end: 20120310
  4. SPIRIVA [Concomitant]
  5. FLUTICASONE PROPIONATE [Concomitant]
  6. LIPITOR [Concomitant]
  7. ASPIRIN [Concomitant]
  8. ALTACE [Concomitant]

REACTIONS (3)
  - SUICIDAL IDEATION [None]
  - DEPRESSION [None]
  - AFFECTIVE DISORDER [None]
